FAERS Safety Report 5649226-X (Version None)
Quarter: 2008Q1

REPORT INFORMATION
  Report Type: 
  Country: None (occurrence: None)
  Receive Date: 20080304
  Receipt Date: 20071206
  Transmission Date: 20080703
  Serious: No
  Sender: FDA-Public Use
  Company Number: US-BAYER-200716082NA

PATIENT
  Age: 81 Year
  Sex: Female
  Weight: 88 kg

DRUGS (8)
  1. ULTRAVIST 370 [Suspect]
     Indication: COMPUTERISED TOMOGRAM
     Dosage: UNIT DOSE: 80 ML
     Route: 042
     Dates: start: 20071205, end: 20071205
  2. ACTO [Concomitant]
  3. BENICAR [Concomitant]
  4. GLUCOTROL [Concomitant]
  5. SYNTHROID [Concomitant]
  6. CYMBALTA [Concomitant]
  7. LIPITOR [Concomitant]
  8. K-CHLOR [Concomitant]

REACTIONS (1)
  - URTICARIA [None]
